FAERS Safety Report 8425182-6 (Version None)
Quarter: 2012Q2

REPORT INFORMATION
  Report Type: 
  Country: None (occurrence: None)
  Receive Date: 20120611
  Receipt Date: 20120528
  Transmission Date: 20120825
  Serious: Yes (Death, Other)
  Sender: FDA-Public Use
  Company Number: KR-ACCORD-013661

PATIENT

DRUGS (5)
  1. MYCOPHENOLATE MOFETIL [Suspect]
     Indication: IMMUNOSUPPRESSION
  2. BASILIXIMAB [Suspect]
     Indication: IMMUNOSUPPRESSION
     Dosage: ON THE DAY OF OPERATION AND POSTOPERATIVE DAY 4.
  3. METHYLPREDNISOLONE [Suspect]
     Indication: IMMUNOSUPPRESSION
  4. TACROLIMUS [Suspect]
     Indication: IMMUNOSUPPRESSION
  5. RITUXIMAB [Suspect]
     Indication: IMMUNOSUPPRESSION

REACTIONS (2)
  - METABOLIC ACIDOSIS [None]
  - PNEUMONIA [None]
